FAERS Safety Report 22307211 (Version 1)
Quarter: 2023Q2

REPORT INFORMATION
  Report Type: Spontaneous
  Country: US (occurrence: None)
  Receive Date: 20230511
  Receipt Date: 20230511
  Transmission Date: 20230721
  Serious: No
  Sender: FDA-Public Use
  Company Number: US-ROCHE-3115112

PATIENT
  Age: 69 Year
  Sex: Male
  Weight: 86.260 kg

DRUGS (1)
  1. OCREVUS [Suspect]
     Active Substance: OCRELIZUMAB
     Indication: Primary progressive multiple sclerosis
     Dosage: 600 MG IV INFUSION EVERY 6 MONTHS ;ONGOING: YES
     Route: 041

REACTIONS (1)
  - Blood immunoglobulin M decreased [Not Recovered/Not Resolved]
